FAERS Safety Report 11393677 (Version 1)
Quarter: 2015Q3

REPORT INFORMATION
  Report Type: Spontaneous
  Country: US (occurrence: US)
  Receive Date: 20150819
  Receipt Date: 20150819
  Transmission Date: 20151125
  Serious: Yes (Other)
  Sender: FDA-Public Use
  Company Number: US-BEH-2015053086

PATIENT
  Sex: Male
  Weight: 85.3 kg

DRUGS (36)
  1. DEXTROSE. [Concomitant]
     Active Substance: DEXTROSE
  2. EPIPEN [Concomitant]
     Active Substance: EPINEPHRINE
     Indication: ANAPHYLACTIC REACTION
  3. LASIX [Concomitant]
     Active Substance: FUROSEMIDE
  4. CIPRO [Concomitant]
     Active Substance: CIPROFLOXACIN HYDROCHLORIDE
  5. MYCOPHENOLATE [Concomitant]
     Active Substance: MYCOPHENOLIC ACID
  6. DEXAMETHASONE. [Concomitant]
     Active Substance: DEXAMETHASONE
  7. LOW DOSE ASPIRIN [Concomitant]
     Active Substance: ASPIRIN
  8. SODIUM CHLORIDE. [Concomitant]
     Active Substance: SODIUM CHLORIDE
  9. OXYGEN. [Concomitant]
     Active Substance: OXYGEN
  10. AMBIEN [Concomitant]
     Active Substance: ZOLPIDEM TARTRATE
  11. PRILOSEC [Concomitant]
     Active Substance: OMEPRAZOLE MAGNESIUM
  12. ZETIA [Concomitant]
     Active Substance: EZETIMIBE
  13. ACETAMINOPHEN. [Concomitant]
     Active Substance: ACETAMINOPHEN
  14. FENTANYL. [Concomitant]
     Active Substance: FENTANYL
  15. VALTREX [Concomitant]
     Active Substance: VALACYCLOVIR HYDROCHLORIDE
  16. KLOR-CON [Concomitant]
     Active Substance: POTASSIUM CHLORIDE
  17. REGLAN [Concomitant]
     Active Substance: METOCLOPRAMIDE HYDROCHLORIDE
  18. PRIVIGEN [Suspect]
     Active Substance: HUMAN IMMUNOGLOBULIN G
     Indication: MYELODYSPLASTIC SYNDROME
     Route: 042
  19. DEPO-TESTOSTERONE [Concomitant]
     Active Substance: TESTOSTERONE CYPIONATE
  20. LIPITOR [Concomitant]
     Active Substance: ATORVASTATIN CALCIUM
  21. AMOXICILLIN. [Concomitant]
     Active Substance: AMOXICILLIN
  22. FLONASE [Concomitant]
     Active Substance: FLUTICASONE PROPIONATE
  23. VITAMIN B12 [Concomitant]
     Active Substance: CYANOCOBALAMIN
  24. VITAMIN D [Concomitant]
     Active Substance: CHOLECALCIFEROL
  25. GABAPENTIN. [Concomitant]
     Active Substance: GABAPENTIN
  26. BACTRIM [Concomitant]
     Active Substance: SULFAMETHOXAZOLE\TRIMETHOPRIM
  27. FOLIC ACID. [Concomitant]
     Active Substance: FOLIC ACID
  28. FERROUS SULFATE [Concomitant]
     Active Substance: FERROUS SULFATE\FERROUS SULFATE, DRIED
  29. DIPHENHYDRAMINE. [Concomitant]
     Active Substance: DIPHENHYDRAMINE
  30. SINGULAIR [Concomitant]
     Active Substance: MONTELUKAST SODIUM
  31. BYSTOLIC [Concomitant]
     Active Substance: NEBIVOLOL HYDROCHLORIDE
  32. PERCOCET [Concomitant]
     Active Substance: ACETAMINOPHEN\OXYCODONE HYDROCHLORIDE
  33. DETROL [Concomitant]
     Active Substance: TOLTERODINE TARTRATE
  34. NYSTATIN. [Concomitant]
     Active Substance: NYSTATIN
  35. FLOMAX [Concomitant]
     Active Substance: TAMSULOSIN HYDROCHLORIDE
  36. ATIVAN [Concomitant]
     Active Substance: LORAZEPAM

REACTIONS (8)
  - Chills [Unknown]
  - Pyrexia [Unknown]
  - Respiratory tract infection [Unknown]
  - Skin warm [Unknown]
  - Pneumonia [Unknown]
  - Balance disorder [Unknown]
  - Unevaluable event [Unknown]
  - Cough [Unknown]
